FAERS Safety Report 21305604 (Version 3)
Quarter: 2022Q3

REPORT INFORMATION
  Report Type: Report from Study
  Country: US (occurrence: US)
  Receive Date: 20220908
  Receipt Date: 20220922
  Transmission Date: 20221027
  Serious: Yes (Life-Threatening, Hospitalization, Other)
  Sender: FDA-Public Use
  Company Number: US-BRISTOL-MYERS SQUIBB COMPANY-2022-100307

PATIENT
  Age: 65 Year
  Sex: Female

DRUGS (2)
  1. NIVOLUMAB [Suspect]
     Active Substance: NIVOLUMAB
     Indication: Non-small cell lung cancer metastatic
     Route: 042
     Dates: start: 20220726
  2. IPILIMUMAB [Suspect]
     Active Substance: IPILIMUMAB
     Indication: Non-small cell lung cancer metastatic
     Route: 042
     Dates: start: 20220726

REACTIONS (3)
  - Pulmonary haemorrhage [Recovered/Resolved]
  - Pulmonary artery aneurysm [Unknown]
  - Haemoptysis [Unknown]

NARRATIVE: CASE EVENT DATE: 20220901
